FAERS Safety Report 7552814-7 (Version None)
Quarter: 2011Q2

REPORT INFORMATION
  Report Type: 
  Country: None (occurrence: None)
  Receive Date: 20110616
  Receipt Date: 20110613
  Transmission Date: 20111010
  Serious: Yes (Hospitalization, Other)
  Sender: FDA-Public Use
  Company Number: US-PFIZER INC-2006002022

PATIENT
  Sex: Female
  Weight: 63.5 kg

DRUGS (19)
  1. NEXIUM [Concomitant]
  2. PULMICORT [Concomitant]
     Dosage: AS AND WHEN REQUIRED
  3. NASONEX [Concomitant]
  4. PLAVIX [Concomitant]
  5. EPINASTINE [Concomitant]
  6. XOPENEX [Concomitant]
     Dosage: AS AND WHEN REQUIRED
  7. LASIX [Concomitant]
  8. ALBUTEROL SULFATE AUTOHALER [Concomitant]
  9. LOVAZA [Concomitant]
  10. DIOVAN [Concomitant]
  11. IBANDRONATE SODIUM [Concomitant]
     Dosage: ONCE A MONTH
  12. EVISTA [Concomitant]
  13. CITRACAL + D [Concomitant]
  14. LIPITOR [Suspect]
  15. CLINDAMYCIN [Concomitant]
     Dosage: AS AND WHEN REQUIRED
  16. DIOVAN HCT [Concomitant]
  17. ASCORBIC ACID [Concomitant]
  18. VITAMIN B-12 [Concomitant]
  19. ULTRACET [Concomitant]

REACTIONS (22)
  - CEREBROVASCULAR ACCIDENT [None]
  - HYPOAESTHESIA [None]
  - HYPERTENSION [None]
  - BODY HEIGHT DECREASED [None]
  - INJURY [None]
  - DEHYDRATION [None]
  - BLOOD POTASSIUM DECREASED [None]
  - VERTIGO [None]
  - UNEVALUABLE EVENT [None]
  - LIGAMENT RUPTURE [None]
  - GLUCOSE TOLERANCE IMPAIRED [None]
  - ANAEMIA [None]
  - DIZZINESS [None]
  - NASOPHARYNGITIS [None]
  - OSTEOPOROSIS [None]
  - ARTHRITIS [None]
  - FALL [None]
  - TRANSIENT ISCHAEMIC ATTACK [None]
  - FIBROMYALGIA [None]
  - ASTHMA [None]
  - HYPERSENSITIVITY [None]
  - CHEST PAIN [None]
